FAERS Safety Report 6467882-3 (Version None)
Quarter: 2009Q4

REPORT INFORMATION
  Report Type: 
  Country: None (occurrence: None)
  Receive Date: 20091127
  Receipt Date: 20091123
  Transmission Date: 20100525
  Serious: Yes (Disabling)
  Sender: FDA-Public Use
  Company Number: 2009SP037883

PATIENT
  Age: 19 Year
  Sex: Female
  Weight: 58 kg

DRUGS (1)
  1. PEG-INTRON [Suspect]
     Indication: BONE SARCOMA
     Dates: start: 20090929, end: 20091029

REACTIONS (5)
  - ASTHENIA [None]
  - DYSPNOEA [None]
  - EJECTION FRACTION DECREASED [None]
  - FATIGUE [None]
  - LEFT VENTRICULAR DYSFUNCTION [None]
